FAERS Safety Report 7154023-2 (Version None)
Quarter: 2010Q4

REPORT INFORMATION
  Report Type: 
  Country: None (occurrence: None)
  Receive Date: 20101213
  Receipt Date: 20101201
  Transmission Date: 20110411
  Serious: Yes (Hospitalization, Other)
  Sender: FDA-Public Use
  Company Number: PHHY2010FR38025

PATIENT
  Sex: Female
  Weight: 65 kg

DRUGS (2)
  1. CGP 57148B T35717+ [Suspect]
     Indication: CHRONIC MYELOID LEUKAEMIA
  2. SPRYCEL [Suspect]
     Dosage: 50 MG DAILY

REACTIONS (6)
  - AORTIC ARTERIOSCLEROSIS [None]
  - APHASIA [None]
  - ARTERIOSCLEROSIS [None]
  - DYSARTHRIA [None]
  - HEADACHE [None]
  - TRANSIENT ISCHAEMIC ATTACK [None]
